FAERS Safety Report 8589224-X (Version None)
Quarter: 2012Q2

REPORT INFORMATION
  Report Type: 
  Country: None (occurrence: None)
  Receive Date: 20120423
  Receipt Date: 20090414
  Transmission Date: 20120825
  Serious: Yes (Other)
  Sender: FDA-Public Use
  Company Number: PHEH2009US03721

PATIENT
  Age: 64 Year
  Sex: Female

DRUGS (4)
  1. LOPRESSOR (METOPROLOL TARTRATE) TABLET [Suspect]
     Indication: HYPERTENSION
     Dosage: 20 MG, QD, ORAL
     Route: 048
     Dates: start: 19950101
  2. TRIAMETERENE AND HYDROCHLOROTHIAZIDE [Suspect]
     Indication: HYPERTENSION
     Dosage: 37.5/25MG (1/2 TAB QD), ORAL
     Route: 048
     Dates: start: 20090101, end: 20090318
  3. TRIAMETERENE AND HYDROCHLOROTHIAZIDE [Suspect]
     Indication: HYPERTENSION
     Dosage: 37.5/25MG (1/2 TAB QD), ORAL
     Route: 048
     Dates: start: 20090319
  4. TRIAMETERENE AND HYDROCHLOROTHIAZIDE [Suspect]
     Indication: HYPERTENSION
     Dosage: 37.5/25MG (1/2 TAB QD), ORAL
     Route: 048
     Dates: start: 19950101, end: 20090101

REACTIONS (2)
  - BLOOD PRESSURE INCREASED [None]
  - DRUG INEFFECTIVE [None]
